FAERS Safety Report 23752493 (Version 1)
Quarter: 2024Q2

REPORT INFORMATION
  Report Type: Spontaneous
  Country: US (occurrence: US)
  Receive Date: 20240417
  Receipt Date: 20240417
  Transmission Date: 20240716
  Serious: No
  Sender: FDA-Public Use
  Company Number: US-INCYTE CORPORATION-2024IN003639

PATIENT

DRUGS (1)
  1. JAKAFI [Suspect]
     Active Substance: RUXOLITINIB
     Indication: Myeloproliferative neoplasm
     Dosage: 10 MILLIGRAM, BID
     Route: 048

REACTIONS (5)
  - Off label use [Unknown]
  - Pruritus [Unknown]
  - Skin irritation [Unknown]
  - Hyperhidrosis [Not Recovered/Not Resolved]
  - Weight increased [Unknown]
